FAERS Safety Report 10228944 (Version 1)
Quarter: 2014Q2

REPORT INFORMATION
  Report Type: Spontaneous
  Country: US (occurrence: US)
  Receive Date: 20140610
  Receipt Date: 20140610
  Transmission Date: 20141212
  Serious: Yes (Hospitalization)
  Sender: FDA-Public Use
  Company Number: US-GLAXOSMITHKLINE-A1076333A

PATIENT
  Age: 68 Year
  Sex: 0

DRUGS (1)
  1. MELPHALAN [Suspect]
     Indication: PLASMA CELL MYELOMA
     Dosage: 24MG PER DAY
     Route: 048
     Dates: start: 20100323, end: 20120203

REACTIONS (4)
  - Lyme disease [Unknown]
  - Sepsis [Unknown]
  - Pyrexia [Unknown]
  - Lung infiltration [Unknown]
